FAERS Safety Report 5487820-X (Version None)
Quarter: 2007Q4

REPORT INFORMATION
  Report Type: 
  Country: None (occurrence: None)
  Receive Date: 20071001
  Receipt Date: 20061110
  Transmission Date: 20080405
  Serious: Yes (Other)
  Sender: FDA-Public Use
  Company Number: TPA2003A01318

PATIENT
  Age: 54 Year
  Sex: Male
  Weight: 107.0489 kg

DRUGS (13)
  1. ACTOS [Suspect]
     Indication: TYPE 2 DIABETES MELLITUS
     Dosage: 30 MG, 1 IN 1 D, PER ORAL, 45 MG, 1 IN 1 D, PER ORAL
     Route: 048
     Dates: start: 20000922, end: 20030516
  2. ACTOS [Suspect]
     Indication: TYPE 2 DIABETES MELLITUS
     Dosage: 30 MG, 1 IN 1 D, PER ORAL, 45 MG, 1 IN 1 D, PER ORAL
     Route: 048
     Dates: start: 20030516, end: 20030918
  3. AVANDIA [Suspect]
     Indication: TYPE 2 DIABETES MELLITUS
     Dosage: 8 MG, 1 IN 1 D, PER ORAL
     Route: 048
     Dates: start: 20030516, end: 20030918
  4. AVANDIA [Suspect]
     Indication: TYPE 2 DIABETES MELLITUS
     Dosage: 8 MG, 1 IN 1 D, PER ORAL
     Route: 048
     Dates: end: 20050624
  5. GLUCOVANCE [Concomitant]
  6. ALTACE (RAMIPRIL) (10 MILLIGRAM) [Concomitant]
  7. HYDROCHLOROTHIAZIDE (HYDROCHLOROTHIAZIDE) (12.5 MILLIGRAM) [Concomitant]
  8. NORVASC (AMLODIPINE BESILATE) (10 MILLIGRAM) [Concomitant]
  9. ASPIRIN [Concomitant]
  10. MULTIVITAMIN [Concomitant]
  11. TOPROL-XL [Concomitant]
  12. TELMISARTAN (TELMISARTAN) [Concomitant]
  13. REPAGLINIDE [Concomitant]

REACTIONS (12)
  - ANAEMIA [None]
  - CATARACT NUCLEAR [None]
  - CONDITION AGGRAVATED [None]
  - DIABETIC RETINAL OEDEMA [None]
  - DIABETIC RETINOPATHY [None]
  - DRUG ERUPTION [None]
  - EYELID OEDEMA [None]
  - HYPERTENSION [None]
  - MACULAR PSEUDOHOLE [None]
  - OEDEMA PERIPHERAL [None]
  - VISION BLURRED [None]
  - VITREOUS FLOATERS [None]
